FAERS Safety Report 16290711 (Version 1)
Quarter: 2019Q2

REPORT INFORMATION
  Report Type: Spontaneous
  Country: US (occurrence: US)
  Receive Date: 20190509
  Receipt Date: 20190509
  Transmission Date: 20190711
  Serious: Yes (Death, Hospitalization, Other)
  Sender: FDA-Public Use
  Company Number: US-MYLANLABS-2019M1043428

PATIENT
  Age: 34 Year
  Sex: Male

DRUGS (6)
  1. GABAPENTIN. [Concomitant]
     Active Substance: GABAPENTIN
     Indication: PRODUCT USED FOR UNKNOWN INDICATION
     Route: 065
  2. LOPERAMIDE [Suspect]
     Active Substance: LOPERAMIDE
     Dosage: ACCIDENTAL OVERDOSE ON 200PILLS OF 2 MG
     Route: 065
  3. LOPERAMIDE [Suspect]
     Active Substance: LOPERAMIDE
     Indication: PRODUCT USED FOR UNKNOWN INDICATION
     Dosage: 25-30 PILLS OF LOPERAMIDE 2MG PER DAY AT A TIME, WHICH ESCALATED UP TO 200 PILLS OF 2MG PER DAY
     Route: 065
  4. LOPERAMIDE [Suspect]
     Active Substance: LOPERAMIDE
     Dosage: 200 PILLS OF 2MG PER DAY
     Route: 065
  5. LOPERAMIDE [Suspect]
     Active Substance: LOPERAMIDE
     Dosage: LAST DOSE : 144MG (72 PILLS)
     Route: 065
  6. ETIZOLAM [Suspect]
     Active Substance: ETIZOLAM
     Indication: PRODUCT USED FOR UNKNOWN INDICATION
     Route: 065

REACTIONS (8)
  - Pulmonary congestion [Fatal]
  - Atrioventricular block first degree [Unknown]
  - Depressed level of consciousness [Recovered/Resolved]
  - Toxicity to various agents [Fatal]
  - Drug abuse [Recovering/Resolving]
  - Drug withdrawal syndrome [Recovering/Resolving]
  - Overdose [Fatal]
  - Drug dependence [Unknown]
